FAERS Safety Report 10394472 (Version 3)
Quarter: 2014Q3

REPORT INFORMATION
  Report Type: Report from Study
  Country: AR (occurrence: AR)
  Receive Date: 20140819
  Receipt Date: 20140904
  Transmission Date: 20150326
  Serious: Yes (Other)
  Sender: FDA-Public Use
  Company Number: PHHY2014AR103180

PATIENT
  Sex: Female

DRUGS (1)
  1. TRILEPTAL [Suspect]
     Active Substance: OXCARBAZEPINE
     Indication: HAEMANGIOMA
     Dosage: 300 MG, TID
     Route: 048
     Dates: start: 200009

REACTIONS (3)
  - Convulsion [Recovered/Resolved]
  - Stress [Recovered/Resolved]
  - Memory impairment [Unknown]
